FAERS Safety Report 4655890-4 (Version None)
Quarter: 2005Q2

REPORT INFORMATION
  Report Type: 
  Country: None (occurrence: None)
  Receive Date: 20050509
  Receipt Date: 20050415
  Transmission Date: 20051028
  Serious: Yes (Hospitalization)
  Sender: FDA-Public Use
  Company Number: FR-ABBOTT-05P-056-0297735-00

PATIENT
  Age: 41 Year
  Sex: Female

DRUGS (32)
  1. KALETRA [Suspect]
     Indication: DRUG USE FOR UNKNOWN INDICATION
     Route: 048
     Dates: end: 20050314
  2. KALETRA [Suspect]
  3. PYRIMETHAMINE [Suspect]
     Indication: CEREBRAL TOXOPLASMOSIS
     Route: 048
     Dates: end: 20050314
  4. PYRIMETHAMINE [Suspect]
  5. CLINDAMYCIN [Suspect]
     Indication: CEREBRAL TOXOPLASMOSIS
     Dates: end: 20050314
  6. CLINDAMYCIN [Suspect]
  7. LAMIVUDINE + ZIDOVUDINE [Suspect]
     Indication: DRUG USE FOR UNKNOWN INDICATION
     Route: 048
     Dates: end: 20050314
  8. LAMIVUDINE + ZIDOVUDINE [Suspect]
  9. CALCIUM FOLINATE [Concomitant]
     Indication: DRUG USE FOR UNKNOWN INDICATION
     Route: 048
  10. PENTAMIDINE DILSETHONIATE [Concomitant]
     Indication: DRUG USE FOR UNKNOWN INDICATION
     Route: 055
  11. CEFTRIAXONE [Concomitant]
     Indication: URINARY TRACT INFECTION
     Dates: end: 20050301
  12. AZITHROMYCIN [Concomitant]
     Indication: URINARY TRACT INFECTION
     Dates: end: 20050301
  13. OFLOXACIN [Concomitant]
     Indication: URINARY TRACT INFECTION
     Dates: end: 20050301
  14. OFLOXACIN [Concomitant]
     Dates: start: 20050315
  15. NSAID [Concomitant]
     Indication: DRUG USE FOR UNKNOWN INDICATION
     Dates: start: 20050201, end: 20050301
  16. CALCIUM FOLINATE [Concomitant]
     Indication: CEREBRAL TOXOPLASMOSIS
  17. CLARITHROMYCIN [Concomitant]
     Indication: TOXOPLASMOSIS
  18. CLARITHROMYCIN [Concomitant]
     Indication: PROPHYLAXIS
  19. MINOCYCLINE HYDROCHLORIDE [Concomitant]
     Indication: TOXOPLASMOSIS
  20. MINOCYCLINE HYDROCHLORIDE [Concomitant]
     Indication: PROPHYLAXIS
  21. BEARBERRY EXTRACT [Concomitant]
     Indication: PHYTOTHERAPY
  22. HEATHER [Concomitant]
     Indication: PHYTOTHERAPY
  23. NETTLE [Concomitant]
     Indication: PHYTOTHERAPY
  24. BIRCH [Concomitant]
     Indication: PHYTOTHERAPY
  25. GINGER [Concomitant]
     Indication: PHYTOTHERAPY
  26. COLA [Concomitant]
     Indication: PHYTOTHERAPY
  27. CINNAMON [Concomitant]
     Indication: PHYTOTHERAPY
  28. GINSENG [Concomitant]
     Indication: PHYTOTHERAPY
  29. CLARITHROMYCIN [Concomitant]
  30. CLARITHROMYCIN [Concomitant]
  31. MINOCYCLINE HYDROCHLORIDE [Concomitant]
  32. MINOCYCLINE HYDROCHLORIDE [Concomitant]

REACTIONS (3)
  - HAEMATURIA [None]
  - NEUTROPENIA [None]
  - PANCYTOPENIA [None]
